FAERS Safety Report 13501230 (Version 1)
Quarter: 2017Q2

REPORT INFORMATION
  Report Type: Spontaneous
  Country: US (occurrence: US)
  Receive Date: 20170501
  Receipt Date: 20170501
  Transmission Date: 20170830
  Serious: No
  Sender: FDA-Public Use
  Company Number: US-ROCHE-1895893

PATIENT
  Sex: Female
  Weight: 50.85 kg

DRUGS (2)
  1. ESBRIET [Suspect]
     Active Substance: PIRFENIDONE
     Indication: INTERSTITIAL LUNG DISEASE
     Dosage: 3 TABS 3 TIMES PER DAY FOR ABOUT TWO WEEKS ONLY;
     Route: 048
     Dates: start: 201611
  2. ESBRIET [Suspect]
     Active Substance: PIRFENIDONE
     Indication: PULMONARY FIBROSIS
     Dosage: 2 TABS 3 TIMES PER DAY
     Route: 048
     Dates: start: 201611

REACTIONS (1)
  - Nausea [Not Recovered/Not Resolved]
